FAERS Safety Report 18963908 (Version 1)
Quarter: 2021Q1

REPORT INFORMATION
  Report Type: Spontaneous
  Country: US (occurrence: US)
  Receive Date: 20210303
  Receipt Date: 20210303
  Transmission Date: 20210420
  Serious: No
  Sender: FDA-Public Use
  Company Number: US-AMNEAL PHARMACEUTICALS-2020-AMRX-00137

PATIENT
  Sex: Female
  Weight: 52.2 kg

DRUGS (21)
  1. MYRBETRIQ [Concomitant]
     Active Substance: MIRABEGRON
     Indication: PRODUCT USED FOR UNKNOWN INDICATION
     Dosage: UNK
     Route: 065
  2. LEVOTHYROXIN [Concomitant]
     Active Substance: LEVOTHYROXINE
     Indication: PRODUCT USED FOR UNKNOWN INDICATION
     Dosage: UNK
     Route: 065
  3. GOCOVRI [Suspect]
     Active Substance: AMANTADINE
     Dosage: 1 DOSAGE FORM, BEDTIME, 274MG
     Route: 048
  4. PROZAC [Concomitant]
     Active Substance: FLUOXETINE HYDROCHLORIDE
     Indication: PRODUCT USED FOR UNKNOWN INDICATION
     Dosage: UNK
     Route: 065
  5. GOCOVRI [Suspect]
     Active Substance: AMANTADINE
     Dosage: 1 DOSAGE FORM, BEDTIME, 274MG
     Route: 048
     Dates: start: 2018, end: 2018
  6. GOCOVRI [Suspect]
     Active Substance: AMANTADINE
     Dosage: 1 DOSAGE FORM, BEDTIME, 274MG
     Route: 048
     Dates: start: 2018
  7. GOCOVRI [Suspect]
     Active Substance: AMANTADINE
     Dosage: 1 DOSAGE FORM, BEDTIME, 274MG
     Route: 048
  8. CLONAZEPAM. [Concomitant]
     Active Substance: CLONAZEPAM
     Indication: PRODUCT USED FOR UNKNOWN INDICATION
     Dosage: UNK
     Route: 065
  9. VITAMIN D [COLECALCIFEROL] [Concomitant]
     Active Substance: CHOLECALCIFEROL
     Indication: MEDICAL DIET
     Dosage: UNK
     Route: 065
  10. GOCOVRI [Suspect]
     Active Substance: AMANTADINE
     Indication: DYSKINESIA
     Dosage: 1 DOSAGE FORM, BEDTIME
     Route: 048
     Dates: start: 20180319, end: 20180325
  11. PRISTIQ EXTENDED?RELEASE [Concomitant]
     Active Substance: DESVENLAFAXINE SUCCINATE
     Indication: PRODUCT USED FOR UNKNOWN INDICATION
     Dosage: UNK
     Route: 065
  12. RYTARY [Suspect]
     Active Substance: CARBIDOPA\LEVODOPA
     Indication: PRODUCT USED FOR UNKNOWN INDICATION
     Dosage: UNK, 5 /DAY
     Route: 065
  13. GOCOVRI [Suspect]
     Active Substance: AMANTADINE
     Dosage: 1 DOSAGE FORM, BEDTIME, 274MG
     Route: 048
     Dates: start: 20180326, end: 2018
  14. STOOL SOFTENER (DOCUSATE) [Concomitant]
     Active Substance: DOCUSATE
     Indication: PRODUCT USED FOR UNKNOWN INDICATION
     Dosage: UNK
     Route: 065
  15. NUPLAZID [Concomitant]
     Active Substance: PIMAVANSERIN TARTRATE
     Dosage: 4 TABLETS, 5 /DAY
     Route: 065
  16. MIRAPEX [Concomitant]
     Active Substance: PRAMIPEXOLE DIHYDROCHLORIDE
     Indication: PRODUCT USED FOR UNKNOWN INDICATION
     Dosage: UNK
     Route: 065
  17. CIMETIDINE [Concomitant]
     Active Substance: CIMETIDINE
     Indication: PRODUCT USED FOR UNKNOWN INDICATION
     Dosage: UNK
     Route: 065
  18. CARBIDOPA/LEVODOPA [Concomitant]
     Active Substance: CARBIDOPA\LEVODOPA
     Indication: PRODUCT USED FOR UNKNOWN INDICATION
     Dosage: UNK
     Route: 065
  19. NUPLAZID [Concomitant]
     Active Substance: PIMAVANSERIN TARTRATE
     Indication: PRODUCT USED FOR UNKNOWN INDICATION
     Dosage: UNK
     Route: 065
     Dates: start: 20180703
  20. GOCOVRI [Suspect]
     Active Substance: AMANTADINE
     Dosage: 1 DOSAGE FORM, BEDTIME, 274 MG
     Route: 048
  21. BIOTIN [Concomitant]
     Active Substance: BIOTIN
     Indication: MEDICAL DIET
     Dosage: UNK
     Route: 065

REACTIONS (22)
  - Panic attack [Unknown]
  - Oral discomfort [Unknown]
  - Chromatopsia [Unknown]
  - Freezing phenomenon [Not Recovered/Not Resolved]
  - Feeling abnormal [Not Recovered/Not Resolved]
  - Hypoaesthesia oral [Recovered/Resolved]
  - Anxiety [Unknown]
  - Oral disorder [Unknown]
  - Bruxism [Unknown]
  - Drooling [Unknown]
  - Hallucinations, mixed [Not Recovered/Not Resolved]
  - Dysphemia [Unknown]
  - Tongue disorder [Not Recovered/Not Resolved]
  - Visual impairment [Unknown]
  - Salivary hypersecretion [Unknown]
  - Unevaluable event [Unknown]
  - Constipation [Recovered/Resolved]
  - Dysphonia [Not Recovered/Not Resolved]
  - Hypoaesthesia [Not Recovered/Not Resolved]
  - Fatigue [Unknown]
  - Thinking abnormal [Unknown]
  - Product dose omission issue [Unknown]

NARRATIVE: CASE EVENT DATE: 2018
